FAERS Safety Report 14576448 (Version 4)
Quarter: 2019Q2

REPORT INFORMATION
  Report Type: Spontaneous
  Country: US (occurrence: US)
  Receive Date: 20180227
  Receipt Date: 20190501
  Transmission Date: 20190711
  Serious: No
  Sender: FDA-Public Use
  Company Number: US-PFIZER INC-2018078609

PATIENT
  Age: 69 Year
  Sex: Female

DRUGS (3)
  1. ADVIL ALLERGY SINUS [Suspect]
     Active Substance: CHLORPHENIRAMINE MALEATE\IBUPROFEN\PSEUDOEPHEDRINE HYDROCHLORIDE
     Indication: ALLERGY PROPHYLAXIS
     Dosage: 10 MG, DAILY (TOOK IT FOR 6 DAYS)
     Dates: start: 201809, end: 201809
  2. ADVIL ALLERGY SINUS [Suspect]
     Active Substance: CHLORPHENIRAMINE MALEATE\IBUPROFEN\PSEUDOEPHEDRINE HYDROCHLORIDE
     Indication: NASAL CONGESTION
     Dosage: 200 MG, 1X/DAY
     Dates: start: 20180104
  3. FLOVENT [Concomitant]
     Active Substance: FLUTICASONE PROPIONATE
     Dosage: 110 MG, DAILY (INHALE 1 PUFF)
     Route: 055

REACTIONS (6)
  - Alanine aminotransferase increased [Recovered/Resolved]
  - Blood immunoglobulin E increased [Unknown]
  - Arthralgia [Recovered/Resolved]
  - Dyspepsia [Unknown]
  - Pain in extremity [Recovering/Resolving]
  - Mobility decreased [Recovered/Resolved]

NARRATIVE: CASE EVENT DATE: 20180124
